FAERS Safety Report 7679516-0 (Version None)
Quarter: 2011Q3

REPORT INFORMATION
  Report Type: 
  Country: None (occurrence: None)
  Receive Date: 20110812
  Receipt Date: 20110805
  Transmission Date: 20111222
  Serious: Yes (Other)
  Sender: FDA-Public Use
  Company Number: FR-BRISTOL-MYERS SQUIBB COMPANY-15950074

PATIENT
  Age: 55 Year
  Sex: Female
  Weight: 48 kg

DRUGS (4)
  1. PRIMPERAN TAB [Concomitant]
  2. IPILIMUMAB [Suspect]
     Indication: MALIGNANT MELANOMA
     Route: 042
     Dates: start: 20110701
  3. ACUPAN [Concomitant]
  4. ACETAMINOPHEN [Concomitant]

REACTIONS (3)
  - HEADACHE [None]
  - LYMPHOPENIA [None]
  - HYPERTHYROIDISM [None]
